FAERS Safety Report 5411173-6 (Version None)
Quarter: 2007Q3

REPORT INFORMATION
  Report Type: 
  Country: None (occurrence: None)
  Receive Date: 20070810
  Receipt Date: 20070806
  Transmission Date: 20080115
  Serious: Yes (Death, Hospitalization)
  Sender: FDA-Public Use
  Company Number: A0668363A

PATIENT
  Sex: Male

DRUGS (1)
  1. AVANDIA [Suspect]
     Route: 048
     Dates: start: 20040801

REACTIONS (3)
  - CARDIAC ARREST [None]
  - DEATH [None]
  - PHARMACEUTICAL PRODUCT COMPLAINT [None]
